FAERS Safety Report 4857492-3 (Version None)
Quarter: 2005Q4

REPORT INFORMATION
  Report Type: 
  Country: None (occurrence: None)
  Receive Date: 20051215
  Receipt Date: 20051207
  Transmission Date: 20060501
  Serious: Yes (Death)
  Sender: FDA-Public Use
  Company Number: TPG2005A00492

PATIENT
  Age: 57 Year
  Sex: Male

DRUGS (5)
  1. ACTOS [Suspect]
     Indication: DIABETES MELLITUS
     Dosage: PER ORAL
     Route: 048
     Dates: start: 20050301
  2. METFORMIN HCL [Concomitant]
  3. BLOPRESS (CANDESARTAN CILEXETIL) [Concomitant]
  4. FERRO-SANOL (FERROUS SULFATE) [Concomitant]
  5. NEURONTIN [Concomitant]

REACTIONS (12)
  - APHASIA [None]
  - BONE MARROW FAILURE [None]
  - BONE MARROW TOXICITY [None]
  - CEREBRAL HAEMORRHAGE [None]
  - DRUG TOXICITY [None]
  - HEMIPARESIS [None]
  - MARROW HYPERPLASIA [None]
  - MYELODYSPLASTIC SYNDROME [None]
  - MYELOPROLIFERATIVE DISORDER [None]
  - NIGHT SWEATS [None]
  - PNEUMONIA [None]
  - RUPTURED CEREBRAL ANEURYSM [None]
